FAERS Safety Report 18267579 (Version 1)
Quarter: 2020Q3

REPORT INFORMATION
  Report Type: Spontaneous
  Country: CN (occurrence: CN)
  Receive Date: 20200915
  Receipt Date: 20200915
  Transmission Date: 20201103
  Serious: Yes (Other)
  Sender: FDA-Public Use
  Company Number: ALC2020CN007304

PATIENT
  Age: 60 Year
  Sex: Female

DRUGS (1)
  1. FLUORESCITE [Suspect]
     Active Substance: FLUORESCEIN SODIUM
     Indication: ANGIOGRAM
     Dosage: 3 ML, QD
     Route: 047
     Dates: start: 20200907, end: 20200907

REACTIONS (3)
  - Muscular weakness [Recovering/Resolving]
  - Erythema [Recovering/Resolving]
  - Hyperhidrosis [Recovering/Resolving]

NARRATIVE: CASE EVENT DATE: 20200907
